FAERS Safety Report 7537247-1 (Version None)
Quarter: 2011Q2

REPORT INFORMATION
  Report Type: 
  Country: None (occurrence: None)
  Receive Date: 20110524
  Receipt Date: 20110412
  Transmission Date: 20111010
  Serious: No
  Sender: FDA-Public Use
  Company Number: 031412

PATIENT
  Age: 29 Year
  Sex: Male

DRUGS (2)
  1. CIMZIA [Suspect]
     Indication: CROHN'S DISEASE
     Dosage: SUBCUTANEOUS
     Route: 058
  2. ENTOCORT EC [Concomitant]

REACTIONS (3)
  - DYSPNOEA [None]
  - TACHYCARDIA [None]
  - ANXIETY [None]
